FAERS Safety Report 17747345 (Version 2)
Quarter: 2020Q2

REPORT INFORMATION
  Report Type: Spontaneous
  Country: DE (occurrence: DE)
  Receive Date: 20200505
  Receipt Date: 20200623
  Transmission Date: 20200714
  Serious: Yes (Hospitalization, Other)
  Sender: FDA-Public Use
  Company Number: NVSC2020DE101631

PATIENT
  Age: 78 Year
  Sex: Female

DRUGS (18)
  1. CLINDAMYCIN. [Suspect]
     Active Substance: CLINDAMYCIN
     Indication: CEREBRAL TOXOPLASMOSIS
     Dosage: UNK
     Route: 065
  2. ATOVAQUONE. [Suspect]
     Active Substance: ATOVAQUONE
     Indication: CEREBRAL TOXOPLASMOSIS
     Dosage: 2 X 5 ML
     Route: 065
  3. PRIVIGEN [Concomitant]
     Active Substance: HUMAN IMMUNOGLOBULIN G
     Indication: BLOOD IMMUNOGLOBULIN G DECREASED
     Dosage: 30 G, Q4W
     Route: 042
  4. TILIDINE [Concomitant]
     Active Substance: TILIDINE
     Indication: ANALGESIC THERAPY
  5. PYRIMETHAMINE [Suspect]
     Active Substance: PYRIMETHAMINE
     Indication: CEREBRAL TOXOPLASMOSIS
     Dosage: 50 MG, QD
     Route: 065
  6. TRIAMCINOLONE [Concomitant]
     Active Substance: TRIAMCINOLONE
     Indication: RHEUMATOID ARTHRITIS
     Dosage: 40 MG
     Route: 050
  7. METHOTREXATE. [Suspect]
     Active Substance: METHOTREXATE
     Indication: RHEUMATOID ARTHRITIS
     Dosage: UNK
     Route: 065
  8. PYRIMETHAMINE [Suspect]
     Active Substance: PYRIMETHAMINE
     Dosage: 25 MG, QD
     Route: 065
  9. PREDNISOLONE. [Concomitant]
     Active Substance: PREDNISOLONE
     Dosage: 7.5 MG, QD
     Route: 065
  10. NALOXONE [Concomitant]
     Active Substance: NALOXONE
     Indication: RHEUMATOID ARTHRITIS
     Dosage: UNK
     Route: 065
  11. COTRIMOXAZOLE [Suspect]
     Active Substance: SULFAMETHOXAZOLE\TRIMETHOPRIM
     Indication: PRODUCT USED FOR UNKNOWN INDICATION
     Dosage: UNK
     Route: 065
  12. NALOXONE [Concomitant]
     Active Substance: NALOXONE
     Indication: ANALGESIC THERAPY
  13. TILIDINE [Concomitant]
     Active Substance: TILIDINE
     Indication: RHEUMATOID ARTHRITIS
     Dosage: UNK
     Route: 065
  14. PREDNISOLONE. [Concomitant]
     Active Substance: PREDNISOLONE
     Indication: RHEUMATOID ARTHRITIS
     Dosage: 5 MG, QD, LOW DOSE
     Route: 065
  15. METAMIZOLE [Concomitant]
     Active Substance: METAMIZOLE
     Indication: ANALGESIC THERAPY
  16. ATOVAQUONE. [Suspect]
     Active Substance: ATOVAQUONE
     Dosage: 2 X 10 ML
     Route: 065
  17. SULFADIAZINE. [Suspect]
     Active Substance: SULFADIAZINE
     Indication: CEREBRAL TOXOPLASMOSIS
     Dosage: 2 G, BID
     Route: 065
  18. METAMIZOLE [Concomitant]
     Active Substance: METAMIZOLE
     Indication: RHEUMATOID ARTHRITIS
     Dosage: UNK
     Route: 065

REACTIONS (41)
  - Cerebral toxoplasmosis [Unknown]
  - Malaise [Unknown]
  - Dysdiadochokinesis [Unknown]
  - Insomnia [Unknown]
  - Nausea [Unknown]
  - Dermatitis exfoliative generalised [Recovered/Resolved]
  - Dizziness [Unknown]
  - Protein total increased [Unknown]
  - Pleocytosis [Unknown]
  - Polyneuropathy [Unknown]
  - CSF oligoclonal band present [Unknown]
  - Rheumatoid factor increased [Unknown]
  - Tremor [Unknown]
  - Arthritis [Unknown]
  - Blood immunoglobulin G decreased [Unknown]
  - Neurological symptom [Unknown]
  - Anti-cyclic citrullinated peptide antibody positive [Unknown]
  - Joint vibration [Unknown]
  - Dysstasia [Unknown]
  - Muscular weakness [Unknown]
  - Leukocytosis [Unknown]
  - Sensory disturbance [Unknown]
  - Intracranial mass [Unknown]
  - Gait disturbance [Unknown]
  - Infection protozoal [Unknown]
  - Epstein-Barr virus infection [Unknown]
  - Restlessness [Unknown]
  - Pruritus [Recovered/Resolved]
  - Central nervous system lesion [Unknown]
  - Drug hypersensitivity [Unknown]
  - Headache [Unknown]
  - Glomerular filtration rate decreased [Unknown]
  - C-reactive protein increased [Unknown]
  - Chills [Unknown]
  - Somnolence [Unknown]
  - Pancytopenia [Recovered/Resolved]
  - Interleukin-2 receptor increased [Unknown]
  - Tachycardia [Unknown]
  - Feeling cold [Unknown]
  - Asthenia [Unknown]
  - Muscle atrophy [Unknown]
